FAERS Safety Report 5810618-7 (Version None)
Quarter: 2008Q3

REPORT INFORMATION
  Report Type: 
  Country: None (occurrence: None)
  Receive Date: 20080710
  Receipt Date: 20080702
  Transmission Date: 20090109
  Serious: Yes (Other)
  Sender: FDA-Public Use
  Company Number: 2008017574

PATIENT
  Age: 73 Year
  Sex: Female
  Weight: 47.6277 kg

DRUGS (4)
  1. ROGAINE [Suspect]
     Indication: ALOPECIA
     Dosage: SMALL AMOUNT ONCE DAILY, TOPICAL
     Route: 061
     Dates: start: 20070702, end: 20080701
  2. TRAZODONE HCL [Concomitant]
  3. EVISTA [Concomitant]
  4. OMEPRAZOLE [Concomitant]

REACTIONS (2)
  - HEART RATE INCREASED [None]
  - LOSS OF CONSCIOUSNESS [None]
